FAERS Safety Report 4476912-X (Version None)
Quarter: 2004Q4

REPORT INFORMATION
  Report Type: 
  Country: None (occurrence: None)
  Receive Date: 20041013
  Receipt Date: 20040927
  Transmission Date: 20050328
  Serious: Yes (Other)
  Sender: FDA-Public Use
  Company Number: GBS040815373

PATIENT
  Age: 54 Year
  Sex: Female

DRUGS (6)
  1. GEMCITABINE HYDROCHLORIDE-IV (GEMCITABINE) [Suspect]
     Indication: PANCREATIC CARCINOMA
     Dates: start: 20030501, end: 20040801
  2. MORPHINE SULFATE [Concomitant]
  3. DOTHIEPIN HYDROCHLORIDE [Concomitant]
  4. LANSOPRAZOLE [Concomitant]
  5. CYCLIZINE [Concomitant]
  6. CO-DANTHRUSATE [Concomitant]

REACTIONS (6)
  - ASTHENIA [None]
  - CONFUSIONAL STATE [None]
  - DYSPHAGIA [None]
  - ENCEPHALOPATHY [None]
  - HEADACHE [None]
  - OEDEMA [None]
